FAERS Safety Report 22657709 (Version 1)
Quarter: 2023Q2

REPORT INFORMATION
  Report Type: Spontaneous
  Country: US (occurrence: US)
  Receive Date: 20230630
  Receipt Date: 20230630
  Transmission Date: 20230722
  Serious: No
  Sender: FDA-Public Use
  Company Number: US-PFIZER INC-202300233083

PATIENT
  Age: 10 Year
  Sex: Female
  Weight: 24.95 kg

DRUGS (1)
  1. GENOTROPIN [Suspect]
     Active Substance: SOMATROPIN
     Indication: Growth disorder
     Dosage: ONCE A DAY 6 DAYS A WEEK
     Dates: start: 20230509

REACTIONS (2)
  - Device use error [Unknown]
  - Device information output issue [Unknown]

NARRATIVE: CASE EVENT DATE: 20230101
